FAERS Safety Report 6552333-0 (Version None)
Quarter: 2010Q1

REPORT INFORMATION
  Report Type: 
  Country: None (occurrence: None)
  Receive Date: 20100120
  Receipt Date: 20100104
  Transmission Date: 20100710
  Serious: Yes (Other)
  Sender: FDA-Public Use
  Company Number: 201001011

PATIENT
  Age: 67 Year
  Sex: Male

DRUGS (1)
  1. TESTIM [Suspect]
     Indication: HYPOGONADISM
     Dosage: 50 MG, DAILY, TRANSDERMAL
     Route: 062
     Dates: start: 20070726, end: 20071116

REACTIONS (1)
  - PROSTATIC SPECIFIC ANTIGEN INCREASED [None]
